FAERS Safety Report 7530169-1 (Version None)
Quarter: 2011Q2

REPORT INFORMATION
  Report Type: 
  Country: None (occurrence: None)
  Receive Date: 20110607
  Receipt Date: 20110606
  Transmission Date: 20111010
  Serious: Yes (Other)
  Sender: FDA-Public Use
  Company Number: GB-AMGEN-QUU437554

PATIENT
  Age: 28 Year
  Sex: Female
  Weight: 85 kg

DRUGS (2)
  1. NPLATE [Suspect]
     Dosage: 10 A?G/KG, UNK
     Route: 058
     Dates: start: 20100629, end: 20100825
  2. NPLATE [Suspect]
     Indication: IDIOPATHIC THROMBOCYTOPENIC PURPURA
     Dosage: 10 A?G/KG, UNK
     Route: 058
     Dates: start: 20100629, end: 20100825

REACTIONS (3)
  - DRUG INEFFECTIVE [None]
  - MENSTRUAL DISORDER [None]
  - ALANINE AMINOTRANSFERASE INCREASED [None]
